FAERS Safety Report 9306327 (Version 1)
Quarter: 2013Q2

REPORT INFORMATION
  Report Type: Spontaneous
  Country: US (occurrence: None)
  Receive Date: 20130502
  Receipt Date: 20130502
  Transmission Date: 20140414
  Serious: No
  Sender: FDA-Public Use
  Company Number: US-145399

PATIENT
  Sex: Female

DRUGS (1)
  1. WINRHO ADF [Suspect]
     Indication: PROPHYLAXIS AGAINST RH ISOIMMUNISATION
     Dates: start: 20130422, end: 20130422

REACTIONS (4)
  - Expired drug administered [None]
  - Medication error [None]
  - Drug administration error [None]
  - Drug dispensing error [None]
